FAERS Safety Report 10242428 (Version 1)
Quarter: 2014Q2

REPORT INFORMATION
  Report Type: Spontaneous
  Country: US (occurrence: US)
  Receive Date: 20140617
  Receipt Date: 20140617
  Transmission Date: 20141212
  Serious: No
  Sender: FDA-Public Use
  Company Number: US-BAYER-2014-090470

PATIENT
  Sex: Female

DRUGS (1)
  1. SKYLA [Suspect]
     Dosage: UNK
     Route: 015
     Dates: start: 20140611

REACTIONS (1)
  - Expired device used [Not Recovered/Not Resolved]
